FAERS Safety Report 5001029-5 (Version None)
Quarter: 2006Q2

REPORT INFORMATION
  Report Type: 
  Country: None (occurrence: None)
  Receive Date: 20060512
  Receipt Date: 20050414
  Transmission Date: 20061013
  Serious: Yes (Hospitalization)
  Sender: FDA-Public Use
  Company Number: FR-GLAXOSMITHKLINE-B0377800A

PATIENT
  Age: 27 Year
  Sex: Male
  Weight: 64 kg

DRUGS (3)
  1. LAMICTAL [Suspect]
     Indication: EPILEPSY
     Route: 048
     Dates: start: 20050318, end: 20050402
  2. DEPAKENE [Suspect]
     Indication: EPILEPSY
     Route: 048
     Dates: start: 20050402
  3. IMODIUM [Concomitant]
     Dosage: 2MG PER DAY
     Route: 048
     Dates: start: 20020615

REACTIONS (5)
  - CONVULSION [None]
  - CORNEAL OPACITY [None]
  - DRUG INTERACTION [None]
  - ONYCHOMADESIS [None]
  - STEVENS-JOHNSON SYNDROME [None]
